FAERS Safety Report 15672851 (Version 1)
Quarter: 2018Q4

REPORT INFORMATION
  Report Type: Report from Study
  Country: US (occurrence: US)
  Receive Date: 20181129
  Receipt Date: 20181129
  Transmission Date: 20190205
  Serious: No
  Sender: FDA-Public Use
  Company Number: US-TESARO-US-2018TSO00203

PATIENT
  Age: 75 Year
  Sex: Female

DRUGS (1)
  1. ZEJULA [Suspect]
     Active Substance: NIRAPARIB
     Indication: MALIGNANT PERITONEAL NEOPLASM
     Dosage: 300 MG, QD
     Route: 048
     Dates: start: 201703

REACTIONS (12)
  - Sleep deficit [Unknown]
  - Thermal burn [Unknown]
  - Hyperhidrosis [Recovering/Resolving]
  - Emotional distress [Unknown]
  - Platelet count increased [Unknown]
  - Muscular weakness [Not Recovered/Not Resolved]
  - Road traffic accident [Unknown]
  - Haemoglobin decreased [Not Recovered/Not Resolved]
  - Memory impairment [Unknown]
  - Muscle spasms [Not Recovered/Not Resolved]
  - Product dose omission [Unknown]
  - Carbohydrate antigen 125 increased [Unknown]

NARRATIVE: CASE EVENT DATE: 201810
